FAERS Safety Report 11604547 (Version 3)
Quarter: 2015Q4

REPORT INFORMATION
  Report Type: Spontaneous
  Country: JP (occurrence: JP)
  Receive Date: 20151007
  Receipt Date: 20151204
  Transmission Date: 20160304
  Serious: Yes (Hospitalization)
  Sender: FDA-Public Use
  Company Number: JP-ASTELLAS-2015JP019764

PATIENT
  Age: 23 Year
  Sex: Male
  Weight: 59 kg

DRUGS (25)
  1. ASACOL [Concomitant]
     Active Substance: MESALAMINE
     Indication: COLITIS ULCERATIVE
     Route: 048
     Dates: start: 20150811
  2. ACELIO [Concomitant]
     Active Substance: ACETAMINOPHEN
     Indication: COLITIS ULCERATIVE
     Route: 042
     Dates: start: 20150919, end: 20150919
  3. NEXIUM [Concomitant]
     Active Substance: ESOMEPRAZOLE MAGNESIUM
     Indication: PRODUCT USED FOR UNKNOWN INDICATION
     Route: 048
     Dates: start: 20150915, end: 20150929
  4. PREDONINE [Concomitant]
     Active Substance: PREDNISOLONE\PREDNISOLONE ACETATE\PREDNISOLONE SODIUM SUCCINATE
     Route: 042
     Dates: start: 20150831, end: 20150904
  5. SERENACE [Concomitant]
     Active Substance: HALOPERIDOL
     Indication: COLITIS ULCERATIVE
     Dosage: 2.5 MG, ONCE (AS NEEDED)
     Route: 042
     Dates: start: 20150905, end: 20150905
  6. MYSLEE [Concomitant]
     Active Substance: ZOLPIDEM TARTRATE
     Indication: PRODUCT USED FOR UNKNOWN INDICATION
     Route: 048
     Dates: start: 20150917, end: 20150926
  7. TAKEPRON [Concomitant]
     Active Substance: LANSOPRAZOLE
     Indication: PRODUCT USED FOR UNKNOWN INDICATION
     Dosage: UNK UNK, UNKNOWN FREQ.
     Route: 048
  8. CEFMETAZOLE                        /00528702/ [Concomitant]
     Indication: COLITIS ULCERATIVE
     Route: 042
     Dates: start: 20150831, end: 20150902
  9. PROGRAF [Suspect]
     Active Substance: TACROLIMUS\TACROLIMUS ANHYDROUS
     Indication: COLITIS ULCERATIVE
     Route: 048
     Dates: start: 20150831
  10. PENTAGIN                           /00052102/ [Concomitant]
     Active Substance: PENTAZOCINE HYDROCHLORIDE
     Indication: COLITIS ULCERATIVE
     Dosage: 15-45 MG, ONCE TO THRICE (AS NEEDED)
     Route: 042
     Dates: start: 20150901, end: 20150903
  11. PREDONINE [Concomitant]
     Active Substance: PREDNISOLONE\PREDNISOLONE ACETATE\PREDNISOLONE SODIUM SUCCINATE
     Route: 042
     Dates: start: 20150908, end: 20150913
  12. AMIPAREN [Concomitant]
     Indication: COLITIS ULCERATIVE
     Route: 042
     Dates: start: 20150908, end: 20150918
  13. GLUCOSE [Concomitant]
     Active Substance: DEXTROSE
     Indication: COLITIS ULCERATIVE
     Route: 042
     Dates: start: 20150908, end: 20150918
  14. PREDNISOLONE. [Concomitant]
     Active Substance: PREDNISOLONE
     Indication: COLITIS ULCERATIVE
     Route: 048
     Dates: start: 20150819
  15. BFLUID [Concomitant]
     Active Substance: AMINO ACIDS\DEXTROSE\ELECTROLYTES NOS\VITAMINS
     Indication: COLITIS ULCERATIVE
     Route: 042
     Dates: start: 20150919, end: 20150926
  16. MIYA-BM [Concomitant]
     Active Substance: CLOSTRIDIUM BUTYRICUM SPORES STRAIN M-55
     Indication: PRODUCT USED FOR UNKNOWN INDICATION
     Route: 048
     Dates: start: 20150906, end: 20150929
  17. PREDONINE [Concomitant]
     Active Substance: PREDNISOLONE\PREDNISOLONE ACETATE\PREDNISOLONE SODIUM SUCCINATE
     Indication: COLITIS ULCERATIVE
     Route: 042
     Dates: start: 20150828
  18. GLUCOSE [Concomitant]
     Active Substance: DEXTROSE
     Indication: COLITIS ULCERATIVE
     Route: 042
     Dates: start: 20150908, end: 20150914
  19. INTRALIPOS [Concomitant]
     Active Substance: SOYBEAN OIL
     Indication: COLITIS ULCERATIVE
     Route: 042
     Dates: start: 20150919, end: 20150925
  20. PROGRAF [Suspect]
     Active Substance: TACROLIMUS\TACROLIMUS ANHYDROUS
     Route: 048
     Dates: end: 20150920
  21. PREDONINE [Concomitant]
     Active Substance: PREDNISOLONE\PREDNISOLONE ACETATE\PREDNISOLONE SODIUM SUCCINATE
     Route: 042
     Dates: start: 20150904, end: 20150907
  22. ELNEOPA NO.2 [Concomitant]
     Active Substance: AMINO ACIDS\CARBOHYDRATES\ELECTROLYTES NOS\VITAMINS
     Indication: COLITIS ULCERATIVE
     Route: 042
     Dates: start: 20150901, end: 20150903
  23. MAGNESIUM SULFATE. [Concomitant]
     Active Substance: MAGNESIUM SULFATE
     Indication: COLITIS ULCERATIVE
     Route: 042
     Dates: start: 20150912, end: 20150918
  24. OMEPRAZOLE                         /00661202/ [Concomitant]
     Indication: COLITIS ULCERATIVE
     Route: 042
     Dates: start: 20150901, end: 20150914
  25. FULCALIQ [Concomitant]
     Active Substance: AMINO ACIDS\CARBOHYDRATES\ELECTROLYTES NOS\VITAMINS
     Indication: COLITIS ULCERATIVE
     Route: 042
     Dates: start: 20150904, end: 20150918

REACTIONS (3)
  - Extrapyramidal disorder [Recovered/Resolved]
  - Candida infection [Recovered/Resolved]
  - Parkinsonism [Recovered/Resolved]

NARRATIVE: CASE EVENT DATE: 20150914
